FAERS Safety Report 14141697 (Version 1)
Quarter: 2017Q4

REPORT INFORMATION
  Report Type: Spontaneous
  Country: US (occurrence: US)
  Receive Date: 20171028
  Receipt Date: 20171028
  Transmission Date: 20180321
  Serious: No
  Sender: FDA-Public Use
  Company Number: None

PATIENT

DRUGS (1)
  1. ESTRADIOL TRANSDERMAL SYSTEM [Suspect]
     Active Substance: ESTRADIOL
     Dosage: ?          QUANTITY:4 PATCH(ES);OTHER FREQUENCY:CHANGE ONCE PER WE;?
     Route: 062
     Dates: start: 20170701, end: 20170904

REACTIONS (2)
  - Urticaria [None]
  - Product adhesion issue [None]

NARRATIVE: CASE EVENT DATE: 20170904
